FAERS Safety Report 9397460 (Version 3)
Quarter: 2013Q3

REPORT INFORMATION
  Report Type: Spontaneous
  Country: CO (occurrence: CO)
  Receive Date: 20130712
  Receipt Date: 20130904
  Transmission Date: 20140515
  Serious: Yes (Hospitalization, Other)
  Sender: FDA-Public Use
  Company Number: CO-PFIZER INC-2013203942

PATIENT
  Age: 38 Year
  Sex: Male

DRUGS (1)
  1. SUTENT [Suspect]
     Indication: RENAL CANCER METASTATIC
     Dosage: 50 MG, 1X/DAY
     Route: 048
     Dates: start: 20100809, end: 201307

REACTIONS (13)
  - Cholecystitis infective [Recovering/Resolving]
  - Vasogenic cerebral oedema [Unknown]
  - Cerebral haemorrhage [Unknown]
  - Vomiting [Recovering/Resolving]
  - Blood uric acid abnormal [Recovering/Resolving]
  - Fluid retention [Recovering/Resolving]
  - Thrombocytopenia [Recovering/Resolving]
  - Blood pressure increased [Recovering/Resolving]
  - Thyroid disorder [Recovering/Resolving]
  - Pain [Unknown]
  - Local swelling [Unknown]
  - Disease progression [Not Recovered/Not Resolved]
  - Renal cancer metastatic [Not Recovered/Not Resolved]
